FAERS Safety Report 4970899-9 (Version None)
Quarter: 2006Q2

REPORT INFORMATION
  Report Type: 
  Country: None (occurrence: None)
  Receive Date: 20060412
  Receipt Date: 20060330
  Transmission Date: 20061013
  Serious: Yes (Death, Hospitalization)
  Sender: FDA-Public Use
  Company Number: FR-AVENTIS-200611156FR

PATIENT
  Age: 69 Year
  Sex: Male
  Weight: 60 kg

DRUGS (14)
  1. IDARAC [Suspect]
     Indication: DRUG USE FOR UNKNOWN INDICATION
     Route: 048
     Dates: start: 20060131, end: 20060217
  2. LANTUS [Suspect]
     Indication: DRUG USE FOR UNKNOWN INDICATION
     Route: 042
  3. DEPAKENE [Suspect]
     Indication: MAJOR DEPRESSION
     Route: 048
     Dates: start: 20051129, end: 20060217
  4. LAROXYL [Suspect]
     Indication: DRUG USE FOR UNKNOWN INDICATION
     Route: 048
     Dates: start: 20060131, end: 20060217
  5. PARIET [Suspect]
     Indication: DRUG USE FOR UNKNOWN INDICATION
     Dosage: DOSE UNIT: UNITS
     Route: 048
     Dates: end: 20060217
  6. PREVISCAN [Suspect]
     Indication: ISCHAEMIC CARDIOMYOPATHY
     Route: 048
     Dates: end: 20060217
  7. CORDARONE [Suspect]
     Indication: DRUG USE FOR UNKNOWN INDICATION
     Route: 048
     Dates: end: 20060217
  8. DAFALGAN [Suspect]
     Indication: DRUG USE FOR UNKNOWN INDICATION
  9. RIVOTRIL [Suspect]
     Indication: DRUG USE FOR UNKNOWN INDICATION
  10. STILNOX [Suspect]
     Indication: DRUG USE FOR UNKNOWN INDICATION
     Route: 048
  11. NITRODERM [Suspect]
     Indication: DRUG USE FOR UNKNOWN INDICATION
     Route: 062
  12. ATARAX [Suspect]
     Indication: DRUG USE FOR UNKNOWN INDICATION
  13. SMECTA [Suspect]
     Indication: DRUG USE FOR UNKNOWN INDICATION
     Route: 048
  14. TRAMADOL HCL [Suspect]
     Indication: DRUG USE FOR UNKNOWN INDICATION

REACTIONS (1)
  - HEPATITIS FULMINANT [None]
